FAERS Safety Report 6433401-0 (Version None)
Quarter: 2009Q4

REPORT INFORMATION
  Report Type: 
  Country: None (occurrence: None)
  Receive Date: 20091109
  Receipt Date: 20091101
  Transmission Date: 20100525
  Serious: Yes (Hospitalization)
  Sender: FDA-Public Use
  Company Number: US-GENENTECH-293397

PATIENT

DRUGS (4)
  1. BEVACIZUMAB [Suspect]
     Indication: NON-SMALL CELL LUNG CANCER
     Dosage: 15 MG/KG, Q3W
     Route: 042
     Dates: start: 20090728
  2. DOCETAXEL [Suspect]
     Indication: NON-SMALL CELL LUNG CANCER
     Dosage: 75 MG/ML, Q3W
     Route: 042
     Dates: start: 20090729
  3. CISPLATIN [Suspect]
     Indication: NON-SMALL CELL LUNG CANCER
     Dosage: 75 MG/M2, Q3W
     Route: 042
     Dates: start: 20090728
  4. DECADRON [Concomitant]
     Indication: DRUG USE FOR UNKNOWN INDICATION

REACTIONS (3)
  - BLOOD GLUCOSE INCREASED [None]
  - ENDOCARDITIS [None]
  - URINARY TRACT INFECTION [None]
